FAERS Safety Report 7179570-9 (Version None)
Quarter: 2010Q4

REPORT INFORMATION
  Report Type: 
  Country: None (occurrence: None)
  Receive Date: 20101221
  Receipt Date: 20101208
  Transmission Date: 20110411
  Serious: Yes (Other)
  Sender: FDA-Public Use
  Company Number: PHHY2010US83801

PATIENT
  Age: 15 Year
  Sex: Male

DRUGS (12)
  1. CYCLOSPORINE [Suspect]
     Indication: RENAL TRANSPLANT
  2. AZATHIOPRINE [Suspect]
     Indication: RENAL TRANSPLANT
  3. PREDNISONE [Suspect]
     Indication: RENAL TRANSPLANT
  4. TACROLIMUS [Suspect]
     Indication: RENAL TRANSPLANT
  5. SIROLIMUS [Suspect]
  6. MYCOPHENOLATE MOFETIL [Suspect]
  7. ALEMTUZUMAB [Suspect]
     Dosage: 30 MG
     Route: 058
  8. ANTIHYPERTENSIVES [Concomitant]
  9. PLASMAPHERESIS BLOOD-PACK SYSTEM INFUSION [Concomitant]
  10. METHYLPREDNISOLONE [Concomitant]
  11. ENOXAPARIN SODIUM [Concomitant]
  12. ECULIZUMAB [Concomitant]
     Dosage: 900 MG
     Route: 042

REACTIONS (21)
  - ANAEMIA [None]
  - BLOOD CREATININE INCREASED [None]
  - BLOOD LACTATE DEHYDROGENASE INCREASED [None]
  - CARDIAC FAILURE CONGESTIVE [None]
  - COUGH [None]
  - DIALYSIS [None]
  - DIARRHOEA [None]
  - FLUID RETENTION [None]
  - GRAFT LOSS [None]
  - H1N1 INFLUENZA [None]
  - HAEMOLYTIC URAEMIC SYNDROME [None]
  - HYPERTENSION [None]
  - PROTEINURIA [None]
  - PULMONARY OEDEMA [None]
  - RENAL FAILURE CHRONIC [None]
  - RENAL IMPAIRMENT [None]
  - SWELLING FACE [None]
  - THROMBOTIC MICROANGIOPATHY [None]
  - URINE OUTPUT DECREASED [None]
  - VIRAL INFECTION [None]
  - WEIGHT INCREASED [None]
